FAERS Safety Report 23015670 (Version 1)
Quarter: 2023Q4

REPORT INFORMATION
  Report Type: Spontaneous
  Country: FR (occurrence: FR)
  Receive Date: 20231002
  Receipt Date: 20231002
  Transmission Date: 20240110
  Serious: Yes (Congenital Anomaly)
  Sender: FDA-Public Use
  Company Number: FR-AFSSAPS-LL2023001584

PATIENT
  Sex: Male
  Weight: 2.25 kg

DRUGS (2)
  1. QUETIAPINE [Suspect]
     Active Substance: QUETIAPINE
     Indication: Bipolar disorder
     Dosage: 600 MILLIGRAM
     Route: 064
  2. OXAZEPAM [Suspect]
     Active Substance: OXAZEPAM
     Indication: Anxiety
     Dosage: UNK
     Route: 064

REACTIONS (3)
  - Foetal growth restriction [Not Recovered/Not Resolved]
  - Jaundice [Recovering/Resolving]
  - Foetal exposure during pregnancy [Unknown]

NARRATIVE: CASE EVENT DATE: 20230620
